FAERS Safety Report 7642128-9 (Version None)
Quarter: 2011Q3

REPORT INFORMATION
  Report Type: 
  Country: None (occurrence: None)
  Receive Date: 20110728
  Receipt Date: 20110721
  Transmission Date: 20111222
  Serious: Yes (Hospitalization, Other)
  Sender: FDA-Public Use
  Company Number: KR-PFIZER INC-2011166554

PATIENT
  Age: 75 Year
  Sex: Male

DRUGS (1)
  1. DOXYCYCLINE MONOHYDRATE [Suspect]
     Indication: SYPHILIS
     Dosage: 100 MG, 2X/DAY
     Route: 048

REACTIONS (1)
  - NEUROSYPHILIS [None]
